FAERS Safety Report 4906143-8 (Version None)
Quarter: 2006Q1

REPORT INFORMATION
  Report Type: 
  Country: None (occurrence: None)
  Receive Date: 20060207
  Receipt Date: 20060207
  Transmission Date: 20060701
  Serious: Yes (Hospitalization)
  Sender: FDA-Public Use
  Company Number: None

PATIENT
  Sex: Male
  Weight: 69.4003 kg

DRUGS (10)
  1. ALBUTEROL [Suspect]
     Indication: CHRONIC OBSTRUCTIVE PULMONARY DISEASE
     Dosage: ? HOW MUCH
  2. DUONEB [Suspect]
     Indication: CHRONIC OBSTRUCTIVE PULMONARY DISEASE
     Dosage: PATIENT USED
  3. COMBIVENT [Suspect]
  4. ERYTHROMYCIN [Concomitant]
  5. FLUNISOLIDE [Concomitant]
  6. GUAIFENESIN [Concomitant]
  7. HYDROCHLOROTHIAZIDE [Concomitant]
  8. LISINOPRIL [Concomitant]
  9. OCUVITE LUTEIN [Concomitant]
  10. ASPIRIN [Concomitant]

REACTIONS (1)
  - TACHYCARDIA [None]
